FAERS Safety Report 22884872 (Version 2)
Quarter: 2023Q4

REPORT INFORMATION
  Report Type: Spontaneous
  Country: US (occurrence: US)
  Receive Date: 20230830
  Receipt Date: 20231129
  Transmission Date: 20240110
  Serious: Yes (Other)
  Sender: FDA-Public Use
  Company Number: US-PFIZER INC-PV202300144907

PATIENT
  Age: 78 Year
  Sex: Female
  Weight: 54.422 kg

DRUGS (2)
  1. INLYTA [Suspect]
     Active Substance: AXITINIB
     Indication: Renal cancer
     Dosage: 5 MG, 1X/DAY
     Dates: start: 20231015, end: 20231024
  2. KEYTRUDA [Concomitant]
     Active Substance: PEMBROLIZUMAB
     Dosage: UNK
     Dates: start: 20230815, end: 20231010

REACTIONS (2)
  - Second primary malignancy [Unknown]
  - Hepatic cancer stage IV [Unknown]
